FAERS Safety Report 6269262-2 (Version None)
Quarter: 2009Q3

REPORT INFORMATION
  Report Type: 
  Country: None (occurrence: None)
  Receive Date: 20090713
  Receipt Date: 20090701
  Transmission Date: 20100115
  Serious: Yes (Other)
  Sender: FDA-Public Use
  Company Number: GXKR2009GB07547

PATIENT
  Age: 11 Year
  Sex: Female

DRUGS (1)
  1. AMOXICILLIN [Suspect]
     Indication: TOOTH ABSCESS
     Dosage: 250 MG, ORAL
     Route: 048
     Dates: start: 20090605, end: 20090605

REACTIONS (3)
  - MALAISE [None]
  - RASH [None]
  - SWELLING FACE [None]
